FAERS Safety Report 15772119 (Version 3)
Quarter: 2019Q1

REPORT INFORMATION
  Report Type: Spontaneous
  Country: PL (occurrence: PL)
  Receive Date: 20181228
  Receipt Date: 20190213
  Transmission Date: 20190417
  Serious: Yes (Hospitalization, Other)
  Sender: FDA-Public Use
  Company Number: PL-PFIZER INC-2018528502

PATIENT
  Age: 62 Year
  Sex: Male

DRUGS (17)
  1. PANCREATIN [Concomitant]
     Active Substance: PANCRELIPASE
     Dosage: 25000 IU, 1X/DAY (WITH A MAIN MEAL)
  2. OXALIPLATIN. [Suspect]
     Active Substance: OXALIPLATIN
     Indication: DUCTAL ADENOCARCINOMA OF PANCREAS
     Dosage: UNK UNK, CYCLIC
  3. METOPROLOL. [Concomitant]
     Active Substance: METOPROLOL
     Dosage: 25 MG, 1X/DAY
  4. KETOPROFEN FORTE [Concomitant]
     Dosage: 100 MG, 2X/DAY
  5. FUROSEMIDE. [Concomitant]
     Active Substance: FUROSEMIDE
     Dosage: 40 MG, 1X/DAY
  6. FENTANYL TRANSDERMAL SYSTEM [Concomitant]
     Active Substance: FENTANYL
     Indication: CANCER PAIN
     Dosage: 100 UG, CYCLIC (EVERY 3 DAYS)
     Route: 062
  7. MORPHINE IR [Concomitant]
     Active Substance: MORPHINE
     Indication: CANCER PAIN
     Dosage: 20 MG, AS NEEDED
     Route: 048
  8. FENTANYL TRANSDERMAL SYSTEM [Concomitant]
     Active Substance: FENTANYL
     Dosage: 50 UG, CYCLIC (EVERY 3 DAYS)
     Route: 062
  9. SPIRONOLACTONE. [Concomitant]
     Active Substance: SPIRONOLACTONE
     Dosage: 25 MG, ALTERNATE DAY
  10. HEPARIN [Concomitant]
     Active Substance: HEPARIN SODIUM
     Dosage: 40 MG/0.4 1 AMP. Q.D. S.C.
     Route: 058
  11. OXYCODONE [Concomitant]
     Active Substance: OXYCODONE
     Indication: CANCER PAIN
     Dosage: 60 MG, 2X/DAY
  12. KETOPROFEN DUO [Concomitant]
     Dosage: UNK UNK, AS NEEDED
  13. FOLINIC ACID [Suspect]
     Active Substance: LEUCOVORIN
     Indication: DUCTAL ADENOCARCINOMA OF PANCREAS
     Dosage: UNK UNK, CYCLIC
  14. FENTANYL TRANSDERMAL SYSTEM [Concomitant]
     Active Substance: FENTANYL
     Dosage: 150 UG, CYCLIC (EVERY 3 DAYS)
     Route: 062
  15. ALPRAZOLAM. [Concomitant]
     Active Substance: ALPRAZOLAM
     Dosage: 0.25 UG, 2X/DAY
  16. IRINOTECAN HCL [Suspect]
     Active Substance: IRINOTECAN HYDROCHLORIDE
     Indication: DUCTAL ADENOCARCINOMA OF PANCREAS
     Dosage: UNK, CYCLIC ^12 COURSES^
  17. FLUOROURACIL. [Suspect]
     Active Substance: FLUOROURACIL
     Indication: DUCTAL ADENOCARCINOMA OF PANCREAS
     Dosage: UNK UNK, CYCLIC

REACTIONS (2)
  - Neutropenia [Unknown]
  - Polyneuropathy [Recovered/Resolved]
